FAERS Safety Report 23674615 (Version 1)
Quarter: 2024Q1

REPORT INFORMATION
  Report Type: Spontaneous
  Country: US (occurrence: None)
  Receive Date: 20240326
  Receipt Date: 20240326
  Transmission Date: 20240410
  Serious: Yes (Death)
  Sender: FDA-Public Use
  Company Number: US-ROCHE-3532981

PATIENT
  Age: 45 Year
  Sex: Female

DRUGS (2)
  1. NUTROPIN AQ [Suspect]
     Active Substance: SOMATROPIN
     Indication: Product used for unknown indication
     Route: 058
     Dates: end: 20240131
  2. NUTROPIN AQ [Suspect]
     Active Substance: SOMATROPIN

REACTIONS (1)
  - Death [Fatal]
